FAERS Safety Report 8014129-2 (Version None)
Quarter: 2011Q4

REPORT INFORMATION
  Report Type: 
  Country: None (occurrence: None)
  Receive Date: 20111229
  Receipt Date: 20111222
  Transmission Date: 20120403
  Serious: No
  Sender: FDA-Public Use
  Company Number: US-BAYER-2011-123517

PATIENT
  Age: 54 Year
  Sex: Female
  Weight: 75 kg

DRUGS (2)
  1. DIOVAN [Concomitant]
  2. ALEVE (CAPLET) [Suspect]
     Dosage: 2 DF, ONCE, BOTTLE COUNT 100S
     Route: 048
     Dates: start: 20111222

REACTIONS (6)
  - OCULAR HYPERAEMIA [None]
  - HYPERSENSITIVITY [None]
  - SWELLING FACE [None]
  - EYE SWELLING [None]
  - PRURITUS GENERALISED [None]
  - ERYTHEMA [None]
